FAERS Safety Report 18534277 (Version 1)
Quarter: 2020Q4

REPORT INFORMATION
  Report Type: Spontaneous
  Country: US (occurrence: US)
  Receive Date: 20201123
  Receipt Date: 20201123
  Transmission Date: 20210114
  Serious: Yes (Hospitalization)
  Sender: FDA-Public Use
  Company Number: None

PATIENT
  Sex: Male

DRUGS (1)
  1. ZELBORAF [Suspect]
     Active Substance: VEMURAFENIB
     Indication: MALIGNANT MELANOMA
     Route: 048
     Dates: start: 20200914

REACTIONS (6)
  - Sepsis [None]
  - Feeling abnormal [None]
  - Confusional state [None]
  - Cardiac disorder [None]
  - Pneumonia [None]
  - Palpitations [None]
